FAERS Safety Report 5299935-X (Version None)
Quarter: 2007Q2

REPORT INFORMATION
  Report Type: 
  Country: None (occurrence: None)
  Receive Date: 20070417
  Receipt Date: 20070406
  Transmission Date: 20071010
  Serious: Yes (Hospitalization)
  Sender: FDA-Public Use
  Company Number: FR-PFIZER INC-2007027504

PATIENT
  Sex: Female
  Weight: 57 kg

DRUGS (11)
  1. LYRICA [Suspect]
     Indication: NEURALGIA
     Route: 048
     Dates: start: 20070312, end: 20070316
  2. LAMICTAL [Suspect]
     Indication: NEURALGIA
     Route: 048
     Dates: start: 20070312, end: 20070316
  3. ANAFRANIL [Suspect]
     Route: 048
  4. CLOMIPRAMINE HCL [Concomitant]
  5. ZOPICLONE [Concomitant]
  6. OXYCODONE HCL [Concomitant]
  7. ASPIRIN [Concomitant]
  8. ESOMEPRAZOLE MAGNESIUM [Concomitant]
  9. ENALAPRIL MALEATE AND HYDROCHLOROTHIAZIDE [Concomitant]
  10. LACTULOSE [Concomitant]
  11. INSULIN GLARGINE [Concomitant]

REACTIONS (4)
  - AGGRESSION [None]
  - AGITATION [None]
  - ANXIETY [None]
  - HALLUCINATION, VISUAL [None]
